FAERS Safety Report 6340962-9 (Version None)
Quarter: 2009Q3

REPORT INFORMATION
  Report Type: 
  Country: None (occurrence: None)
  Receive Date: 20090902
  Receipt Date: 20090902
  Transmission Date: 20100115
  Serious: No
  Sender: FDA-Public Use
  Company Number: None

PATIENT
  Age: 65 Year
  Sex: Male

DRUGS (2)
  1. PROAIR HFA [Suspect]
     Indication: DYSPNOEA
     Dosage: 2 INHALATIONS BY MOUTH FUR TIMES A DAY
     Route: 048
  2. PROAIR HFA [Suspect]

REACTIONS (3)
  - DRUG EFFECT DECREASED [None]
  - DYSPNOEA [None]
  - PRODUCT PACKAGING QUANTITY ISSUE [None]
